FAERS Safety Report 13212275 (Version 1)
Quarter: 2017Q1

REPORT INFORMATION
  Report Type: Spontaneous
  Country: US (occurrence: US)
  Receive Date: 20170210
  Receipt Date: 20170210
  Transmission Date: 20170428
  Serious: Yes (Other)
  Sender: FDA-Public Use
  Company Number: US-SAGENTPRD-2017-US-000026

PATIENT
  Age: 59 Year
  Sex: Male
  Weight: 90.4 kg

DRUGS (1)
  1. PROPOFOL INJECTABLE EMULSION, USP [Suspect]
     Active Substance: PROPOFOL
     Dosage: 300 MG ONE TIME
     Route: 042

REACTIONS (1)
  - Drug ineffective [Unknown]
